FAERS Safety Report 7054571-X (Version None)
Quarter: 2010Q4

REPORT INFORMATION
  Report Type: 
  Country: None (occurrence: None)
  Receive Date: 20101020
  Receipt Date: 20101007
  Transmission Date: 20110411
  Serious: Yes (Other)
  Sender: FDA-Public Use
  Company Number: GB-ELI_LILLY_AND_COMPANY-GB201010001682

PATIENT
  Sex: Female

DRUGS (2)
  1. PROZAC [Suspect]
     Dates: start: 20100801
  2. PROZAC [Suspect]
     Dosage: 20 MG, QOD

REACTIONS (9)
  - CONVULSION [None]
  - FLUSHING [None]
  - GASTROINTESTINAL DISORDER [None]
  - HALLUCINATION [None]
  - HALLUCINATION, AUDITORY [None]
  - MYALGIA [None]
  - NAUSEA [None]
  - SEROTONIN SYNDROME [None]
  - VOMITING [None]
